FAERS Safety Report 9604534 (Version 2)
Quarter: 2014Q2

REPORT INFORMATION
  Report Type: Spontaneous
  Country: JP (occurrence: JP)
  Receive Date: 20131008
  Receipt Date: 20140529
  Transmission Date: 20141212
  Serious: Yes (Other)
  Sender: FDA-Public Use
  Company Number: JP-EISAI INC-E7389-04248-SPO-JP

PATIENT
  Age: 7 Decade
  Sex: Female

DRUGS (3)
  1. HALAVEN [Suspect]
     Indication: BREAST CANCER RECURRENT
     Dosage: 1.1MG/M2
     Route: 041
     Dates: start: 20120806, end: 20130902
  2. HALAVEN [Suspect]
     Dosage: 1.1MG/M2
     Route: 041
     Dates: start: 20131007, end: 20131216
  3. LYRICA [Concomitant]
     Indication: NEUROPATHY PERIPHERAL
     Dosage: UNKNOWN
     Route: 048

REACTIONS (1)
  - Hypoacusis [Recovered/Resolved]
